FAERS Safety Report 6892038-X (Version None)
Quarter: 2010Q3

REPORT INFORMATION
  Report Type: 
  Country: None (occurrence: None)
  Receive Date: 20100731
  Receipt Date: 20071217
  Transmission Date: 20110219
  Serious: Yes (Other)
  Sender: FDA-Public Use
  Company Number: US-PFIZER INC-2007105945

PATIENT
  Sex: Male
  Weight: 123.4 kg

DRUGS (9)
  1. GABAPENTIN [Suspect]
     Indication: NERVE INJURY
     Dates: start: 20071201, end: 20071201
  2. AMITRIPTYLINE HYDROCHLORIDE [Concomitant]
  3. AMBIEN [Concomitant]
  4. OXYCODONE HCL [Concomitant]
  5. LISINOPRIL [Concomitant]
  6. PROTONIX [Concomitant]
  7. HYDROCHLOROTHIAZIDE [Concomitant]
  8. INDOMETHACIN [Concomitant]
  9. EFFEXOR [Concomitant]

REACTIONS (4)
  - AMNESIA [None]
  - FEELING ABNORMAL [None]
  - HALLUCINATION [None]
  - NIGHTMARE [None]
